FAERS Safety Report 5754834-1 (Version None)
Quarter: 2008Q2

REPORT INFORMATION
  Report Type: 
  Country: None (occurrence: None)
  Receive Date: 20080520
  Receipt Date: 20080513
  Transmission Date: 20081010
  Serious: Yes (Other)
  Sender: FDA-Public Use
  Company Number: 200813541

PATIENT
  Age: 37 Year
  Sex: Female

DRUGS (2)
  1. RHOPHYLAC [Suspect]
     Indication: PROPHYLAXIS AGAINST RH ISOIMMUNISATION
     Dosage: 300 UG DAILY IM
     Route: 030
     Dates: start: 20080319, end: 20080319
  2. ACETAMINOPHEN [Concomitant]

REACTIONS (2)
  - MIGRAINE [None]
  - NECK PAIN [None]
